FAERS Safety Report 9293886 (Version 1)
Quarter: 2013Q1

REPORT INFORMATION
  Report Type: Spontaneous
  Country: US (occurrence: None)
  Receive Date: 20121217
  Receipt Date: 20121217
  Transmission Date: 20140127
  Serious: Yes (Other)
  Sender: FDA-Public Use
  Company Number: 1000029661

PATIENT
  Age: 79 Year
  Sex: Female

DRUGS (4)
  1. NAMENDA [Suspect]
     Indication: DEMENTIA
     Dosage: 10 MG, 2 IN 1 D
     Route: 048
     Dates: start: 2007
  2. CENTRUM SILVER MULTIVITAMINS FOR WOMEN [Concomitant]
  3. OMEGA-3 FISH OIL [Concomitant]
  4. FISH PEPTIDES [Concomitant]

REACTIONS (5)
  - Urinary tract infection [None]
  - Urinary retention [None]
  - Headache [None]
  - Hallucination [None]
  - Constipation [None]
